FAERS Safety Report 17141828 (Version 2)
Quarter: 2020Q2

REPORT INFORMATION
  Report Type: Report from Study
  Country: US (occurrence: US)
  Receive Date: 20191211
  Receipt Date: 20200414
  Transmission Date: 20200713
  Serious: Yes (Hospitalization)
  Sender: FDA-Public Use
  Company Number: US-REGENERON PHARMACEUTICALS, INC.-2019-66666

PATIENT

DRUGS (11)
  1. FAMOTIDINE. [Concomitant]
     Active Substance: FAMOTIDINE
     Indication: DYSPEPSIA
     Dosage: 40 MG (20 MG, 2 IN 1 D)
     Route: 048
     Dates: start: 20190807, end: 20190911
  2. ACETAMINOPHEN. [Concomitant]
     Active Substance: ACETAMINOPHEN
     Indication: PYREXIA
     Dosage: 650 MG, AS REQUIRED
     Route: 048
     Dates: start: 20190806
  3. ACETAMINOPHEN. [Concomitant]
     Active Substance: ACETAMINOPHEN
     Indication: HEADACHE
  4. OMEPRAZOLE. [Concomitant]
     Active Substance: OMEPRAZOLE
     Indication: DYSPEPSIA
     Dosage: 40 MG, 1 IN 1 D
     Route: 048
     Dates: start: 20190901
  5. VELEDIMEX [Suspect]
     Active Substance: VELEDIMEX
     Indication: GLIOBLASTOMA
     Dosage: 20 MG, 1 IN 1 D
     Route: 048
     Dates: start: 20190806
  6. AD-RTS-HIL-12 [Suspect]
     Active Substance: INVESTIGATIONAL PRODUCT
     Indication: GLIOBLASTOMA
     Dosage: 2.0 X 10^11; LEFT FRONTAL (0.1 ML, 1 IN 1 D)
     Route: 036
     Dates: start: 20190806
  7. LEVETIRACETAM. [Concomitant]
     Active Substance: LEVETIRACETAM
     Indication: SEIZURE
     Dosage: 2500 MG (1250 MG, 2 IN 1 D)
     Route: 048
     Dates: start: 20190808, end: 20191015
  8. LEVOTHYROXINE. [Concomitant]
     Active Substance: LEVOTHYROXINE
     Indication: HYPOTHYROIDISM
     Dosage: 100 MG, 1 IN 1 D
     Route: 048
  9. ACETAMINOPHEN AND CODEINE [Concomitant]
     Active Substance: ACETAMINOPHEN\CODEINE PHOSPHATE
     Indication: HEADACHE
     Dosage: AS REQUIRED
     Route: 048
     Dates: start: 20190806
  10. CEMIPLIMAB [Suspect]
     Active Substance: CEMIPLIMAB
     Indication: GLIOBLASTOMA
     Dosage: 350 MG, 1 IN 1 D
     Route: 042
     Dates: start: 20190802
  11. LACOSAMIDE. [Concomitant]
     Active Substance: LACOSAMIDE
     Indication: SEIZURE
     Dosage: 100 MG, 2 IN 1 D
     Route: 048

REACTIONS (1)
  - Haemorrhage intracranial [Recovered/Resolved]

NARRATIVE: CASE EVENT DATE: 20191003
